FAERS Safety Report 17058076 (Version 1)
Quarter: 2019Q4

REPORT INFORMATION
  Report Type: Other
  Country: CA (occurrence: CA)
  Receive Date: 20191121
  Receipt Date: 20191121
  Transmission Date: 20200122
  Serious: Yes (Other)
  Sender: FDA-Public Use
  Company Number: CA-PFIZER INC-2019498376

PATIENT
  Age: 16 Year
  Weight: 58 kg

DRUGS (1)
  1. MORPHINE SULFATE. [Suspect]
     Active Substance: MORPHINE SULFATE
     Indication: PAIN MANAGEMENT
     Dosage: UNK
     Route: 041

REACTIONS (5)
  - Incorrect dose administered [Unknown]
  - Bradypnoea [Unknown]
  - Inadequate analgesia [Unknown]
  - Bradycardia [Unknown]
  - Product prescribing error [Unknown]
